FAERS Safety Report 15722934 (Version 1)
Quarter: 2018Q4

REPORT INFORMATION
  Report Type: Spontaneous
  Country: US (occurrence: US)
  Receive Date: 20181214
  Receipt Date: 20181214
  Transmission Date: 20190205
  Serious: Yes (Disabling)
  Sender: FDA-Public Use
  Company Number: None

PATIENT
  Age: 26 Year
  Sex: Female
  Weight: 70.2 kg

DRUGS (5)
  1. SEROQUEL [Concomitant]
     Active Substance: QUETIAPINE FUMARATE
  2. AIMOVIG [Suspect]
     Active Substance: ERENUMAB-AOOE
     Indication: MIGRAINE
     Dosage: ?          OTHER ROUTE:INJECTION INTO MUSCLE?
  3. WOMEN^S MULTI VITAMIN [Concomitant]
  4. FLUVOXAMINE, 100MG [Concomitant]
  5. PRAZOZIN, 2 MG [Concomitant]

REACTIONS (4)
  - Muscle spasms [None]
  - Injection related reaction [None]
  - Pain in extremity [None]
  - Fatigue [None]

NARRATIVE: CASE EVENT DATE: 20181203
